FAERS Safety Report 8305409 (Version 7)
Quarter: 2013Q1

REPORT INFORMATION
  Report Type: Report from Study
  Country: US (occurrence: US)
  Receive Date: 20111221
  Receipt Date: 20130206
  Transmission Date: 20140127
  Serious: Yes (Death, Hospitalization)
  Sender: FDA-Public Use
  Company Number: US-JNJFOC-20111205188

PATIENT
  Age: 37 Year
  Sex: Male
  Weight: 109.32 kg

DRUGS (13)
  1. REMICADE [Suspect]
     Indication: CROHN^S DISEASE
     Route: 042
     Dates: start: 20061122
  2. REMICADE [Suspect]
     Indication: CROHN^S DISEASE
     Dosage: DOSE: 6 VIALS
     Route: 042
     Dates: end: 201110
  3. REMICADE [Suspect]
     Indication: CROHN^S DISEASE
     Route: 042
  4. REMICADE [Suspect]
     Indication: CROHN^S DISEASE
     Route: 042
     Dates: end: 20110909
  5. IMURAN [Suspect]
     Indication: CROHN^S DISEASE
     Route: 048
     Dates: start: 20040729, end: 20110525
  6. IMURAN [Suspect]
     Indication: CROHN^S DISEASE
     Route: 048
     Dates: start: 20040311, end: 20040729
  7. PREDNISONE [Concomitant]
     Dates: start: 201109, end: 201112
  8. IMODIUM A-D [Concomitant]
     Route: 048
  9. IMODIUM A-D [Concomitant]
     Route: 048
  10. FOLIC ACID [Concomitant]
  11. NPLATE [Concomitant]
  12. SULFAMETHOXAZOLE/TRIMETHOPRIM [Concomitant]
  13. MULTIVITAMINS [Concomitant]

REACTIONS (2)
  - Hepatosplenic T-cell lymphoma [Fatal]
  - Pneumonia [Fatal]
